FAERS Safety Report 24279047 (Version 1)
Quarter: 2024Q3

REPORT INFORMATION
  Report Type: Spontaneous
  Country: FR (occurrence: FR)
  Receive Date: 20240903
  Receipt Date: 20240903
  Transmission Date: 20241017
  Serious: Yes (Hospitalization)
  Sender: MYLAN
  Company Number: None

PATIENT
  Age: 59 Year
  Sex: Male
  Weight: 70 kg

DRUGS (4)
  1. EFFEXOR [Interacting]
     Active Substance: VENLAFAXINE HYDROCHLORIDE
     Indication: Mixed anxiety and depressive disorder
     Dosage: 1 DOSAGE FORM, QD
     Route: 048
     Dates: end: 20240807
  2. NEBIVOLOL [Interacting]
     Active Substance: NEBIVOLOL
     Indication: Hypertension
     Dosage: 0.5 DOSAGE FORM, QD
     Route: 048
     Dates: end: 20240807
  3. ACETAMINOPHEN\CODEINE PHOSPHATE [Interacting]
     Active Substance: ACETAMINOPHEN\CODEINE PHOSPHATE
     Indication: Pain
     Dosage: 6 DOSAGE FORM, QD
     Route: 048
     Dates: end: 20240807
  4. ZYPREXA [Interacting]
     Active Substance: OLANZAPINE
     Indication: Mixed anxiety and depressive disorder
     Dosage: 2 DOSAGE FORM, QD
     Route: 048
     Dates: end: 20240807

REACTIONS (3)
  - Heat stroke [Recovering/Resolving]
  - Neuroleptic malignant syndrome [Recovering/Resolving]
  - Drug interaction [Unknown]

NARRATIVE: CASE EVENT DATE: 20240807
